FAERS Safety Report 25937291 (Version 3)
Quarter: 2025Q4

REPORT INFORMATION
  Report Type: Spontaneous
  Country: US (occurrence: US)
  Receive Date: 20251017
  Receipt Date: 20251218
  Transmission Date: 20260118
  Serious: Yes (Other)
  Sender: SANOFI AVENTIS
  Company Number: US-SA-2025SA308672

PATIENT
  Age: 46 Year
  Sex: Female

DRUGS (1)
  1. DUPIXENT [Suspect]
     Active Substance: DUPILUMAB
     Indication: Nasal polyps
     Dosage: 300 MG, QOW
     Route: 058
     Dates: start: 20250919

REACTIONS (9)
  - Meningitis [Unknown]
  - Condition aggravated [Unknown]
  - Staphylococcal infection [Unknown]
  - Pyrexia [Unknown]
  - Nasal discharge discolouration [Unknown]
  - Hyperhidrosis [Unknown]
  - Headache [Unknown]
  - Sinusitis [Unknown]
  - Arthralgia [Recovered/Resolved]

NARRATIVE: CASE EVENT DATE: 20250101
